FAERS Safety Report 5297620-1 (Version None)
Quarter: 2007Q2

REPORT INFORMATION
  Report Type: 
  Country: None (occurrence: None)
  Receive Date: 20070416
  Receipt Date: 20070402
  Transmission Date: 20071010
  Serious: Yes (Other)
  Sender: FDA-Public Use
  Company Number: US-ROCHE-484475

PATIENT
  Age: 40 Year
  Sex: Female

DRUGS (2)
  1. PEGASYS [Suspect]
     Indication: HEPATITIS C VIRUS
     Dosage: PATIENT REPORTED TO BE ON PEGASYS 180.
     Route: 065
     Dates: start: 20070207
  2. RIBAVIRIN [Suspect]
     Indication: HEPATITIS C VIRUS
     Route: 065
     Dates: start: 20070207

REACTIONS (8)
  - ABNORMAL DREAMS [None]
  - BREAST DISCHARGE [None]
  - COUGH [None]
  - DYSGEUSIA [None]
  - FOOD CRAVING [None]
  - HEADACHE [None]
  - INSOMNIA [None]
  - PAIN [None]
